FAERS Safety Report 8601663-7 (Version None)
Quarter: 2012Q3

REPORT INFORMATION
  Report Type: 
  Country: None (occurrence: None)
  Receive Date: 20120806
  Receipt Date: 20120806
  Transmission Date: 20120928
  Serious: Yes (Other)
  Sender: FDA-Public Use
  Company Number: None

PATIENT
  Age: 61 Year
  Sex: Female
  Weight: 54.4316 kg

DRUGS (2)
  1. GOLYTELY [Suspect]
     Indication: ENDOSCOPY
     Dosage: 8 10 OZ H2O GLASS 8X ACCORDING TO INSTRUCTIONS
     Dates: start: 20120122
  2. GOLYTELY [Suspect]
     Indication: GASTROINTESTINAL DISORDER
     Dosage: 8 10 OZ H2O GLASS 8X ACCORDING TO INSTRUCTIONS
     Dates: start: 20120122

REACTIONS (1)
  - CONVULSION [None]
